FAERS Safety Report 13404919 (Version 1)
Quarter: 2017Q2

REPORT INFORMATION
  Report Type: Spontaneous
  Country: US (occurrence: US)
  Receive Date: 20170405
  Receipt Date: 20170405
  Transmission Date: 20170830
  Serious: Yes (Other)
  Sender: FDA-Public Use
  Company Number: US-SA-2017SA054436

PATIENT
  Age: 59 Year
  Sex: Female

DRUGS (2)
  1. LANTUS [Suspect]
     Active Substance: INSULIN GLARGINE
     Indication: TYPE 2 DIABETES MELLITUS
     Route: 065
  2. HUMALOG [Concomitant]
     Active Substance: INSULIN LISPRO

REACTIONS (6)
  - Myocardial infarction [Unknown]
  - Drug dose omission [Unknown]
  - Cerebral disorder [Unknown]
  - Hypoacusis [Unknown]
  - Headache [Unknown]
  - Blood glucose increased [Unknown]

NARRATIVE: CASE EVENT DATE: 201703
